FAERS Safety Report 7400475-X (Version None)
Quarter: 2011Q1

REPORT INFORMATION
  Report Type: 
  Country: None (occurrence: None)
  Receive Date: 20110330
  Receipt Date: 20110315
  Transmission Date: 20110831
  Serious: Yes (Hospitalization, Other)
  Sender: FDA-Public Use
  Company Number: 2011MA000171

PATIENT
  Sex: Male

DRUGS (43)
  1. MAXAIR [Concomitant]
  2. PLAVIX [Concomitant]
  3. BENAZEPRIL HYDROCHLORIDE [Concomitant]
  4. AZMACORT [Concomitant]
  5. NEXIUM [Concomitant]
  6. MS CONTIN [Concomitant]
  7. ALBUTEROL [Concomitant]
  8. CIPROFLOXACIN [Concomitant]
  9. NEXIUM [Concomitant]
  10. LORCET-HD [Concomitant]
  11. COREG [Concomitant]
  12. HYDROCODONE [Concomitant]
  13. FLOMAX [Concomitant]
  14. FUROSEMIDE [Concomitant]
  15. CRESTOR [Concomitant]
  16. METOCLOPRAMIDE [Suspect]
     Indication: IMPAIRED GASTRIC EMPTYING
     Dosage: PO
     Route: 048
     Dates: start: 19990501, end: 20091101
  17. LIPITOR [Concomitant]
  18. CLARINEX [Concomitant]
  19. ELAVIL [Concomitant]
  20. PANLOR-DC [Concomitant]
  21. PROZAC [Concomitant]
  22. INSULIN [Concomitant]
  23. ASPIRIN PLUS [Concomitant]
  24. LIPITOR [Concomitant]
  25. PROMETHAZINE [Concomitant]
  26. ADVAIR HFA [Concomitant]
  27. TRAZODONE [Concomitant]
  28. ZOLPIDEM [Concomitant]
  29. VALIUM [Concomitant]
  30. DEPAKOTE [Concomitant]
  31. KLONOPIN [Concomitant]
  32. AMLODIPINE [Concomitant]
  33. OMEPRAZOLE [Concomitant]
  34. VESICARE [Concomitant]
  35. NITOBID [Concomitant]
  36. PHENERGAN HCL [Concomitant]
  37. LOVASTATIN [Concomitant]
  38. BENADRYL [Concomitant]
  39. LOTENSIN [Concomitant]
  40. DIAZEPAM [Concomitant]
  41. GABAPENTIN [Concomitant]
  42. XOPENEX [Concomitant]
  43. ERYTHROMYCIN [Concomitant]

REACTIONS (48)
  - MAJOR DEPRESSION [None]
  - SUBCUTANEOUS ABSCESS [None]
  - DYSARTHRIA [None]
  - TREMOR [None]
  - DRUG DIVERSION [None]
  - MEMORY IMPAIRMENT [None]
  - COORDINATION ABNORMAL [None]
  - DIARRHOEA [None]
  - DYSPHAGIA [None]
  - EXTRAPYRAMIDAL DISORDER [None]
  - ANXIETY [None]
  - DYSAESTHESIA [None]
  - OESOPHAGITIS [None]
  - DIABETES MELLITUS INADEQUATE CONTROL [None]
  - AKATHISIA [None]
  - DYSPNOEA PAROXYSMAL NOCTURNAL [None]
  - INTERVERTEBRAL DISC PROTRUSION [None]
  - EMOTIONAL DISORDER [None]
  - PAIN [None]
  - GRIMACING [None]
  - RESTLESS LEGS SYNDROME [None]
  - BALANCE DISORDER [None]
  - RECTAL HAEMORRHAGE [None]
  - INJURY [None]
  - EXCESSIVE EYE BLINKING [None]
  - PERIPHERAL ARTERIAL OCCLUSIVE DISEASE [None]
  - DYSPNOEA [None]
  - CONVULSION [None]
  - PROTRUSION TONGUE [None]
  - TREATMENT NONCOMPLIANCE [None]
  - HOMICIDE [None]
  - HEADACHE [None]
  - TARDIVE DYSKINESIA [None]
  - ECONOMIC PROBLEM [None]
  - PROSTATITIS [None]
  - GASTRITIS [None]
  - CONSTIPATION [None]
  - NIGHT SWEATS [None]
  - DIASTOLIC DYSFUNCTION [None]
  - DIZZINESS [None]
  - FLUSHING [None]
  - SPINAL OSTEOARTHRITIS [None]
  - DYSPHONIA [None]
  - DRUG WITHDRAWAL SYNDROME [None]
  - HAEMATOCHEZIA [None]
  - DIVERTICULUM INTESTINAL [None]
  - HAEMORRHOIDS [None]
  - VOMITING [None]
